FAERS Safety Report 13882350 (Version 1)
Quarter: 2017Q3

REPORT INFORMATION
  Report Type: Spontaneous
  Country: US (occurrence: US)
  Receive Date: 20170818
  Receipt Date: 20170818
  Transmission Date: 20171127
  Serious: No
  Sender: FDA-Public Use
  Company Number: US-ASTRAZENECA-2017SE82997

PATIENT
  Age: 51 Year
  Sex: Male
  Weight: 140.6 kg

DRUGS (1)
  1. KOMBIGLYZE XR [Suspect]
     Active Substance: METFORMIN HYDROCHLORIDE\SAXAGLIPTIN HYDROCHLORIDE
     Indication: BLOOD GLUCOSE ABNORMAL
     Dosage: 5/1000 MG, DAILY
     Route: 048
     Dates: start: 2016, end: 2016

REACTIONS (6)
  - Cardiac failure [Unknown]
  - Weight decreased [Unknown]
  - Blood glucose increased [Unknown]
  - Cardiomyopathy [Unknown]
  - Weight loss poor [Unknown]
  - Weight increased [Unknown]

NARRATIVE: CASE EVENT DATE: 201603
